FAERS Safety Report 19695214 (Version 1)
Quarter: 2021Q3

REPORT INFORMATION
  Report Type: Spontaneous
  Country: US (occurrence: US)
  Receive Date: 20210812
  Receipt Date: 20210812
  Transmission Date: 20211014
  Serious: Yes (Other)
  Sender: FDA-Public Use
  Company Number: US-TEVA-2021-US-1939754

PATIENT
  Age: 60 Year
  Sex: Female
  Weight: 96.62 kg

DRUGS (5)
  1. COZAAR [Concomitant]
     Active Substance: LOSARTAN POTASSIUM
  2. VRAYLAR [Concomitant]
     Active Substance: CARIPRAZINE
  3. AUSTEDO [Suspect]
     Active Substance: DEUTETRABENAZINE
     Indication: DYSTONIA
     Dosage: 6 MILLIGRAM DAILY; AT NIGHT
     Route: 065
  4. AUSTEDO [Suspect]
     Active Substance: DEUTETRABENAZINE
     Indication: TARDIVE DYSKINESIA
     Dosage: 12 MILLIGRAM DAILY; ONCE IN THE MORNING AND ONCE AT NIGHT, 9 MONTHS TO 1 YEAR AGO
     Route: 065
     Dates: start: 2020
  5. AUSTEDO [Suspect]
     Active Substance: DEUTETRABENAZINE
     Dosage: 12 MILLIGRAM DAILY; 2 TABLETS OF 6 MG AUSTEDO AT 9 PM AT NIGHT WITH FOOD
     Route: 065
     Dates: start: 202107

REACTIONS (11)
  - Nasal discomfort [Recovering/Resolving]
  - Sedation [Recovered/Resolved]
  - Strabismus [Recovered/Resolved]
  - Somnolence [Recovered/Resolved]
  - Muscle spasms [Recovered/Resolved]
  - Therapeutic response unexpected [Unknown]
  - Throat tightness [Recovering/Resolving]
  - Product use in unapproved indication [Unknown]
  - Oropharyngeal discomfort [Recovering/Resolving]
  - Dyspnoea [Recovering/Resolving]
  - Choking [Recovering/Resolving]

NARRATIVE: CASE EVENT DATE: 2020
